FAERS Safety Report 14070130 (Version 1)
Quarter: 2017Q4

REPORT INFORMATION
  Report Type: Spontaneous
  Country: FR (occurrence: FR)
  Receive Date: 20171010
  Receipt Date: 20171010
  Transmission Date: 20180321
  Serious: Yes (Other)
  Sender: FDA-Public Use
  Company Number: FR-MERCK KGAA-2029463

PATIENT
  Age: 79 Year
  Sex: Female

DRUGS (4)
  1. INNOVAIR(BEKFORM)(BECLOMETASONE DIPROPIONATE, FORMOTEROL FUMARATE) [Concomitant]
  2. DOLIPRANE [Concomitant]
     Active Substance: ACETAMINOPHEN
  3. VENTOLIN [Concomitant]
     Active Substance: ALBUTEROL SULFATE
  4. NOVOTHYROX [Suspect]
     Active Substance: LEVOTHYROXINE SODIUM
     Indication: PRODUCT USED FOR UNKNOWN INDICATION
     Dates: start: 2017

REACTIONS (6)
  - Angina pectoris [Not Recovered/Not Resolved]
  - Blood thyroid stimulating hormone increased [Unknown]
  - Dyspnoea [Not Recovered/Not Resolved]
  - Vertigo [Unknown]
  - Gait disturbance [Unknown]
  - Insomnia [Unknown]

NARRATIVE: CASE EVENT DATE: 2017
